FAERS Safety Report 15249512 (Version 1)
Quarter: 2018Q3

REPORT INFORMATION
  Report Type: Spontaneous
  Country: US (occurrence: US)
  Receive Date: 20180807
  Receipt Date: 20180807
  Transmission Date: 20181010
  Serious: No
  Sender: FDA-Public Use
  Company Number: US-PERRIGO-18US003895

PATIENT
  Age: 39 Year
  Sex: Female
  Weight: 72.56 kg

DRUGS (8)
  1. LORATADINE. [Suspect]
     Active Substance: LORATADINE
     Indication: RHINORRHOEA
     Dosage: 10 MG, QD
     Route: 048
     Dates: start: 20180401, end: 20180404
  2. LORATADINE. [Suspect]
     Active Substance: LORATADINE
     Indication: NASAL CONGESTION
  3. LORATADINE. [Suspect]
     Active Substance: LORATADINE
     Indication: INCREASED UPPER AIRWAY SECRETION
  4. LORATADINE. [Suspect]
     Active Substance: LORATADINE
     Indication: EYE PRURITUS
  5. LORATADINE. [Suspect]
     Active Substance: LORATADINE
     Indication: SNEEZING
  6. LORATADINE. [Suspect]
     Active Substance: LORATADINE
     Indication: OROPHARYNGEAL PAIN
  7. LORATADINE. [Suspect]
     Active Substance: LORATADINE
     Indication: LACRIMATION INCREASED
  8. LORATADINE. [Suspect]
     Active Substance: LORATADINE
     Indication: SEASONAL ALLERGY

REACTIONS (2)
  - Off label use [Recovered/Resolved]
  - Drug ineffective [Unknown]

NARRATIVE: CASE EVENT DATE: 20180401
